FAERS Safety Report 11554722 (Version 1)
Quarter: 2015Q3

REPORT INFORMATION
  Report Type: Spontaneous
  Country: US (occurrence: US)
  Receive Date: 20150903
  Receipt Date: 20150903
  Transmission Date: 20151125
  Serious: No
  Sender: FDA-Public Use
  Company Number: US-ELI_LILLY_AND_COMPANY-US201008008801

PATIENT
  Age: 73 Year
  Sex: Female

DRUGS (3)
  1. HUMALOG [Suspect]
     Active Substance: INSULIN LISPRO
     Dosage: UNK, QID
  2. HUMALOG [Suspect]
     Active Substance: INSULIN LISPRO
     Indication: TYPE 1 DIABETES MELLITUS
     Dosage: UNK, 4/D
     Dates: start: 20080123
  3. LANTUS [Concomitant]
     Active Substance: INSULIN GLARGINE

REACTIONS (7)
  - Blood glucose increased [Unknown]
  - Incorrect dose administered [Recovered/Resolved]
  - Dry mouth [Unknown]
  - Insomnia [Unknown]
  - Anxiety [Unknown]
  - Injection site haemorrhage [Unknown]
  - Onychoclasis [Unknown]

NARRATIVE: CASE EVENT DATE: 20100824
